FAERS Safety Report 10996969 (Version 1)
Quarter: 2015Q2

REPORT INFORMATION
  Report Type: Spontaneous
  Country: US (occurrence: None)
  Receive Date: 20150407
  Receipt Date: 20150407
  Transmission Date: 20150821
  Serious: Yes (Hospitalization)
  Sender: FDA-Public Use
  Company Number: None

PATIENT
  Age: 72 Year
  Sex: Male
  Weight: 92.3 kg

DRUGS (1)
  1. AMOXICILLIN. [Suspect]
     Active Substance: AMOXICILLIN
     Indication: DENTAL CARE
     Route: 048
     Dates: start: 20141105, end: 20141105

REACTIONS (5)
  - Retching [None]
  - Hypokalaemia [None]
  - Dehydration [None]
  - Clostridium difficile colitis [None]
  - Nausea [None]

NARRATIVE: CASE EVENT DATE: 20141127
